FAERS Safety Report 8954545 (Version 1)
Quarter: 2012Q4

REPORT INFORMATION
  Report Type: Spontaneous
  Country: US (occurrence: None)
  Receive Date: 20121205
  Receipt Date: 20121205
  Transmission Date: 20130627
  Serious: No
  Sender: FDA-Public Use
  Company Number: None

PATIENT
  Age: 64 Year
  Sex: Female
  Weight: 107.05 kg

DRUGS (2)
  1. LEVOTHYROXINE [Suspect]
     Indication: HYPOTHYROIDISM
     Dosage: 75 + 88 mcg 1 daily oral
     Route: 048
     Dates: start: 200709, end: 201209
  2. SYNTHROID [Suspect]
     Indication: HYPOTHYROIDISM
     Dosage: 75 mcg 1 daily oral
     Route: 048

REACTIONS (17)
  - Weight increased [None]
  - Fatigue [None]
  - Depression [None]
  - Anxiety [None]
  - Pain in extremity [None]
  - Feeling abnormal [None]
  - Temperature intolerance [None]
  - Hot flush [None]
  - Irritability [None]
  - Sleep disorder [None]
  - Headache [None]
  - Arthralgia [None]
  - Arthralgia [None]
  - Neck pain [None]
  - Back pain [None]
  - Dysphonia [None]
  - Blood pressure increased [None]
